FAERS Safety Report 9747334 (Version 1)
Quarter: 2013Q4

REPORT INFORMATION
  Report Type: Spontaneous
  Country: JP (occurrence: JP)
  Receive Date: 20131212
  Receipt Date: 20131212
  Transmission Date: 20140711
  Serious: Yes (Other)
  Sender: FDA-Public Use
  Company Number: JP-ROCHE-1313827

PATIENT
  Age: 71 Year
  Sex: Female

DRUGS (1)
  1. HERCEPTIN [Suspect]
     Indication: BREAST CANCER
     Dosage: B METHOD
     Route: 041
     Dates: start: 20131017

REACTIONS (3)
  - Eosinophil count increased [Unknown]
  - Drug eruption [Unknown]
  - Neutrophil count decreased [Unknown]
